FAERS Safety Report 5604287-9 (Version None)
Quarter: 2008Q1

REPORT INFORMATION
  Report Type: 
  Country: None (occurrence: None)
  Receive Date: 20080128
  Receipt Date: 20080116
  Transmission Date: 20080703
  Serious: Yes (Hospitalization, Other)
  Sender: FDA-Public Use
  Company Number: GB-AVENTIS-200721710GDDC

PATIENT
  Age: 58 Year
  Sex: Male
  Weight: 92 kg

DRUGS (7)
  1. LANTUS [Suspect]
     Route: 058
     Dates: start: 20071215
  2. METFORMIN HCL [Concomitant]
     Dates: start: 20071001
  3. SIMVASTATIN [Concomitant]
  4. ISOSORBIDE DINITRATE [Concomitant]
  5. RAMIPRIL [Concomitant]
  6. ASPIRIN [Concomitant]
  7. CLOPIDOGREL [Concomitant]
     Dosage: DOSE QUANTITY: 1

REACTIONS (3)
  - NERVOUSNESS [None]
  - OVERDOSE [None]
  - PHARMACEUTICAL PRODUCT COMPLAINT [None]
